FAERS Safety Report 8543299-2 (Version None)
Quarter: 2012Q2

REPORT INFORMATION
  Report Type: 
  Country: None (occurrence: None)
  Receive Date: 20120412
  Receipt Date: 20090211
  Transmission Date: 20120825
  Serious: Yes (Other)
  Sender: FDA-Public Use
  Company Number: PHEH2006US02525

PATIENT
  Age: 56 Year
  Sex: Female
  Weight: 72.6 kg

DRUGS (12)
  1. ZOMETA [Suspect]
     Indication: METASTASES TO BONE
     Dosage: 4 MG Q 4 WEEKS, INTRAVENOUS
     Route: 042
     Dates: start: 20030115
  2. HYDROXYZINE [Concomitant]
  3. IMODIUM [Concomitant]
  4. PROZAC [Concomitant]
  5. BELLAMINE S (BELLADONNA ALKALOIDS, ERGOTAMINE TARTRATE, PHENOBARBITAL) [Concomitant]
  6. RESTORIL [Concomitant]
  7. TAMOFIXEN (TAMOXIFEN) [Concomitant]
  8. AREDIA [Suspect]
     Indication: METASTASES TO BONE
     Dosage: 60MG QMO, INTRAVENOUS
     Route: 042
     Dates: start: 19981101, end: 20021219
  9. FEMARA [Concomitant]
  10. MULTIVITAMINS (ASCORBIC ACID, ERGOCALCIFEROL, FOLIC ACID, NICOTINAMIDE [Concomitant]
  11. ARIMIDEX [Concomitant]
  12. ROBAXIN [Concomitant]

REACTIONS (21)
  - ABSCESS JAW [None]
  - DEPRESSION [None]
  - LESION EXCISION [None]
  - ORAL DISCOMFORT [None]
  - PAIN IN JAW [None]
  - BONE DEBRIDEMENT [None]
  - X-RAY ABNORMAL [None]
  - INFLAMMATION [None]
  - LIVER FUNCTION TEST ABNORMAL [None]
  - ORAL SURGERY [None]
  - ORAL DISORDER [None]
  - OSTEONECROSIS [None]
  - TOOTH DISORDER [None]
  - ORAL INFECTION [None]
  - HYPERBARIC OXYGEN THERAPY [None]
  - BONE EROSION [None]
  - PAIN [None]
  - BONE DISORDER [None]
  - IMPAIRED HEALING [None]
  - ANXIETY [None]
  - INJURY [None]
